FAERS Safety Report 5694392-3 (Version None)
Quarter: 2008Q2

REPORT INFORMATION
  Report Type: 
  Country: None (occurrence: None)
  Receive Date: 20080402
  Receipt Date: 20080317
  Transmission Date: 20081010
  Serious: Yes (Hospitalization)
  Sender: FDA-Public Use
  Company Number: DSA_31655_2008

PATIENT
  Sex: Female

DRUGS (2)
  1. MONO-TILDIEM LP - DILTIAZEM HYDROCHLORIDE [Suspect]
     Indication: DRUG USE FOR UNKNOWN INDICATION
     Dosage: 1 DF QD ORAL
     Route: 048
     Dates: start: 20080220, end: 20080221
  2. ACEBUTOLOL [Concomitant]

REACTIONS (5)
  - LEUKOCYTOSIS [None]
  - PRURITUS [None]
  - PYREXIA [None]
  - RASH MACULO-PAPULAR [None]
  - RASH SCARLATINIFORM [None]
